FAERS Safety Report 4436840-2 (Version None)
Quarter: 2004Q3

REPORT INFORMATION
  Report Type: 
  Country: None (occurrence: None)
  Receive Date: 20040830
  Receipt Date: 20040820
  Transmission Date: 20050211
  Serious: Yes (Hospitalization, Other)
  Sender: FDA-Public Use
  Company Number: PHNU2004DE02949

PATIENT
  Sex: Male

DRUGS (3)
  1. LAMISIL [Suspect]
     Indication: NAIL TINEA
     Dosage: 1 DF, QD
     Route: 048
     Dates: start: 20040601
  2. LAMISIL [Suspect]
     Dosage: 1 DF, QD
  3. COUMADIN [Suspect]
     Dosage: VARYING DOSAGE
     Dates: start: 20040801

REACTIONS (5)
  - ANTICOAGULATION DRUG LEVEL THERAPEUTIC [None]
  - DYSPNOEA [None]
  - PAIN IN EXTREMITY [None]
  - PULMONARY EMBOLISM [None]
  - THROMBOSIS [None]
